FAERS Safety Report 6204814-7 (Version None)
Quarter: 2009Q2

REPORT INFORMATION
  Report Type: 
  Country: None (occurrence: None)
  Receive Date: 20090527
  Receipt Date: 20090521
  Transmission Date: 20091009
  Serious: Yes (Hospitalization)
  Sender: FDA-Public Use
  Company Number: PT-PFIZER INC-2008003472

PATIENT
  Age: 55 Year

DRUGS (15)
  1. ITRACONAZOLE [Suspect]
     Indication: ANTIFUNGAL PROPHYLAXIS
     Dosage: 200 MG, 2X/DAY
     Route: 042
     Dates: start: 20071003, end: 20071005
  2. ITRACONAZOLE [Suspect]
     Dosage: 200 MG, 2X/DAY
     Route: 048
     Dates: start: 20071005, end: 20080118
  3. VORICONAZOLE [Concomitant]
     Indication: ANTIFUNGAL PROPHYLAXIS
     Dosage: 200 MG, 2X/DAY
     Route: 042
     Dates: start: 20090118, end: 20090119
  4. VORICONAZOLE [Concomitant]
     Dosage: 200 MG, 2X/DAY
     Route: 048
     Dates: start: 20080119
  5. PREDNISOLONE [Concomitant]
     Route: 042
     Dates: start: 20080107
  6. CELLCEPT [Concomitant]
     Route: 042
     Dates: start: 20080107
  7. SANDOSTATIN [Concomitant]
     Route: 042
     Dates: start: 20080107
  8. NEUPOGEN [Concomitant]
     Route: 058
     Dates: start: 20080107
  9. ACYCLOVIR [Concomitant]
     Route: 042
     Dates: start: 20080107
  10. ALPRAZOLAM [Concomitant]
     Route: 048
     Dates: start: 20080107
  11. TACROLIMUS [Concomitant]
     Route: 048
     Dates: start: 20080107
  12. LOPERAMIDE HCL [Concomitant]
     Route: 048
     Dates: start: 20080107
  13. FLUDROCORTISONE [Concomitant]
     Route: 048
     Dates: start: 20080107
  14. HYDROCORTISONE [Concomitant]
     Route: 042
     Dates: start: 20080107
  15. PARACETAMOL [Concomitant]
     Route: 042
     Dates: start: 20080107

REACTIONS (5)
  - DIARRHOEA [None]
  - DRUG INEFFECTIVE [None]
  - FATIGUE [None]
  - FUNGAL INFECTION [None]
  - GRAFT VERSUS HOST DISEASE [None]
